FAERS Safety Report 19862059 (Version 1)
Quarter: 2021Q3

REPORT INFORMATION
  Report Type: Report from Study
  Country: US (occurrence: US)
  Receive Date: 20210921
  Receipt Date: 20210921
  Transmission Date: 20211014
  Serious: Yes (Other)
  Sender: FDA-Public Use
  Company Number: US-ASTRAZENECA-2021A722837

PATIENT
  Age: 62 Year
  Sex: Female
  Weight: 70.3 kg

DRUGS (4)
  1. ONDASTERON [Concomitant]
     Route: 065
  2. ALEVE [Concomitant]
     Active Substance: NAPROXEN SODIUM
     Route: 065
  3. LYNPARZA [Suspect]
     Active Substance: OLAPARIB
     Indication: CERVIX CARCINOMA
     Route: 048
     Dates: start: 20210416
  4. LORAZAPAM [Concomitant]
     Active Substance: LORAZEPAM
     Route: 065

REACTIONS (2)
  - Adverse drug reaction [Unknown]
  - White blood cell count decreased [Unknown]
